FAERS Safety Report 23861442 (Version 2)
Quarter: 2024Q2

REPORT INFORMATION
  Report Type: Report from Study
  Country: CA (occurrence: CA)
  Receive Date: 20240516
  Receipt Date: 20240529
  Transmission Date: 20240716
  Serious: Yes (Other)
  Sender: FDA-Public Use
  Company Number: CA-JNJFOC-20240465090

PATIENT
  Age: 47 Year
  Sex: Female
  Weight: 100 kg

DRUGS (6)
  1. REMICADE [Suspect]
     Active Substance: INFLIXIMAB
     Indication: Psoriasis
     Route: 041
     Dates: start: 20100915
  2. REMICADE [Suspect]
     Active Substance: INFLIXIMAB
     Indication: Psoriatic arthropathy
     Route: 041
  3. LEFLUNOMIDE [Concomitant]
     Active Substance: LEFLUNOMIDE
  4. HYDROCHLOROTHIAZIDE [Concomitant]
     Active Substance: HYDROCHLOROTHIAZIDE
  5. SOLIFENACIN [Concomitant]
     Active Substance: SOLIFENACIN
  6. PANTOPRAZOLE [Concomitant]
     Active Substance: PANTOPRAZOLE

REACTIONS (5)
  - Arthritis [Unknown]
  - Retinal injury [Not Recovered/Not Resolved]
  - Psoriasis [Not Recovered/Not Resolved]
  - Intentional product use issue [Unknown]
  - Eye inflammation [Unknown]
